FAERS Safety Report 24648577 (Version 4)
Quarter: 2024Q4

REPORT INFORMATION
  Report Type: Spontaneous
  Country: SK (occurrence: SK)
  Receive Date: 20241121
  Receipt Date: 20241213
  Transmission Date: 20250114
  Serious: Yes (Hospitalization, Other)
  Sender: MYLAN
  Company Number: SK-GLENMARK PHARMACEUTICALS-2024GMK094744

PATIENT
  Age: 67 Year
  Sex: Female

DRUGS (7)
  1. AZACITIDINE [Suspect]
     Active Substance: AZACITIDINE
     Indication: Acute myeloid leukaemia
     Dosage: 75 MILLIGRAM/SQ. METER, QD (D1-7)
     Route: 065
     Dates: start: 20221122, end: 20221205
  2. AZACITIDINE [Suspect]
     Active Substance: AZACITIDINE
     Dosage: 50 MILLIGRAM/SQ. METER, QD (THEN REDUCED TO 50 MG/M2) (DAY 1-7)
     Route: 065
     Dates: start: 20221122, end: 20221205
  3. AZACITIDINE [Suspect]
     Active Substance: AZACITIDINE
     Dosage: UNK
     Route: 065
     Dates: start: 2022
  4. VENETOCLAX [Suspect]
     Active Substance: VENETOCLAX
     Indication: Acute myeloid leukaemia
     Dosage: 100 MILLIGRAM, QD (D1-14)
     Route: 065
     Dates: start: 20221122, end: 20221205
  5. VENETOCLAX [Suspect]
     Active Substance: VENETOCLAX
     Dosage: 100 MILLIGRAM (D1-14)
     Route: 065
  6. VENETOCLAX [Suspect]
     Active Substance: VENETOCLAX
     Dosage: DOSE REDUCED TO DAY 1-7
     Route: 048
     Dates: start: 2022
  7. POSACONAZOLE [Concomitant]
     Active Substance: POSACONAZOLE
     Indication: Acute myeloid leukaemia
     Dosage: UNK
     Route: 065
     Dates: start: 202211, end: 20221205

REACTIONS (5)
  - Acute myeloid leukaemia recurrent [Unknown]
  - Pneumonia [Unknown]
  - Cytopenia [Unknown]
  - Neutropenia [Unknown]
  - Fibrosis [Unknown]
